FAERS Safety Report 13026626 (Version 3)
Quarter: 2017Q2

REPORT INFORMATION
  Report Type: Spontaneous
  Country: JP (occurrence: JP)
  Receive Date: 20161214
  Receipt Date: 20170512
  Transmission Date: 20170830
  Serious: Yes (Death, Other)
  Sender: FDA-Public Use
  Company Number: JP-JNJFOC-20161207086

PATIENT

DRUGS (2)
  1. PREDNISOLONE. [Concomitant]
     Active Substance: PREDNISOLONE
     Indication: HORMONE-REFRACTORY PROSTATE CANCER
     Route: 065
  2. ZYTIGA [Suspect]
     Active Substance: ABIRATERONE ACETATE
     Indication: HORMONE-REFRACTORY PROSTATE CANCER
     Route: 048

REACTIONS (17)
  - Death [Fatal]
  - Platelet count decreased [Unknown]
  - Oedema [Unknown]
  - Diarrhoea [Unknown]
  - Urinary tract infection [Unknown]
  - Malaise [Unknown]
  - Pneumonia [Unknown]
  - Dizziness [Unknown]
  - Decreased appetite [Unknown]
  - Hypokalaemia [Unknown]
  - Performance status decreased [Unknown]
  - Hyperglycaemia [Fatal]
  - Prostate cancer [Unknown]
  - Headache [Unknown]
  - Hypertension [Unknown]
  - Nausea [Unknown]
  - Hepatic function abnormal [Unknown]
